FAERS Safety Report 4929239-3 (Version None)
Quarter: 2006Q1

REPORT INFORMATION
  Report Type: 
  Country: None (occurrence: None)
  Receive Date: 20060301
  Receipt Date: 20060224
  Transmission Date: 20060701
  Serious: Yes (Other)
  Sender: FDA-Public Use
  Company Number: GB-SANOFI-SYNTHELABO-A01200601519

PATIENT
  Age: 45 Year
  Weight: 63 kg

DRUGS (7)
  1. OXALIPLATIN [Suspect]
     Indication: COLORECTAL CANCER METASTATIC
     Route: 041
     Dates: start: 20060125, end: 20060125
  2. GRANISETRON [Concomitant]
     Indication: NAUSEA
     Route: 042
     Dates: start: 20060125
  3. GRANISETRON [Concomitant]
     Indication: VOMITING
     Route: 042
     Dates: start: 20060125
  4. DEXAMETHASONE [Concomitant]
     Indication: NAUSEA
     Route: 042
     Dates: start: 20060125
  5. DEXAMETHASONE [Concomitant]
     Indication: VOMITING
     Route: 042
     Dates: start: 20060125
  6. GABAPENTIN [Concomitant]
     Indication: NEURALGIA
     Dosage: DOSE NOT SPECIFIED
     Route: 048
     Dates: start: 20051001
  7. DIHYDROCODEINE [Concomitant]
     Indication: PAIN
     Route: 048

REACTIONS (1)
  - MUSCLE SPASMS [None]
